FAERS Safety Report 11131765 (Version 1)
Quarter: 2015Q2

REPORT INFORMATION
  Report Type: Report from Study
  Country: DE (occurrence: DE)
  Receive Date: 20150522
  Receipt Date: 20150522
  Transmission Date: 20150821
  Serious: Yes (Hospitalization)
  Sender: FDA-Public Use
  Company Number: DE-ROCHE-1518077

PATIENT
  Age: 47 Year
  Sex: Female

DRUGS (3)
  1. ROACTEMRA [Suspect]
     Active Substance: TOCILIZUMAB
     Dosage: FIFTH ADMINISTRATION ON 18/MAY/2015
     Route: 058
  2. CORTISON [Concomitant]
     Active Substance: CORTISONE ACETATE
     Route: 065
  3. ROACTEMRA [Suspect]
     Active Substance: TOCILIZUMAB
     Indication: RHEUMATOID ARTHRITIS
     Route: 058
     Dates: start: 20141205, end: 20150103

REACTIONS (3)
  - Infection [Recovering/Resolving]
  - Vestibular disorder [Recovering/Resolving]
  - Wound [Unknown]

NARRATIVE: CASE EVENT DATE: 20150101
